FAERS Safety Report 19651321 (Version 1)
Quarter: 2021Q3

REPORT INFORMATION
  Report Type: Spontaneous
  Country: US (occurrence: US)
  Receive Date: 20210803
  Receipt Date: 20210803
  Transmission Date: 20211014
  Serious: No
  Sender: FDA-Public Use
  Company Number: None

PATIENT
  Age: 35 Year
  Sex: Female
  Weight: 104 kg

DRUGS (2)
  1. ESCITALOPRAM (ESCITALOPRAM OXALATE 20MG TAB) [Suspect]
     Active Substance: ESCITALOPRAM OXALATE
     Indication: MOOD SWINGS
     Route: 048
     Dates: start: 20210415, end: 20210415
  2. ESCITALOPRAM (ESCITALOPRAM OXALATE 20MG TAB) [Suspect]
     Active Substance: ESCITALOPRAM OXALATE
     Indication: ANXIETY
     Route: 048
     Dates: start: 20210415, end: 20210415

REACTIONS (8)
  - Nausea [None]
  - Vomiting [None]
  - Hypoaesthesia [None]
  - Dizziness [None]
  - Rash [None]
  - Syncope [None]
  - Tachypnoea [None]
  - Tongue disorder [None]

NARRATIVE: CASE EVENT DATE: 20210416
